FAERS Safety Report 12212386 (Version 1)
Quarter: 2016Q1

REPORT INFORMATION
  Report Type: Spontaneous
  Country: US (occurrence: US)
  Receive Date: 20160326
  Receipt Date: 20160326
  Transmission Date: 20160526
  Serious: No
  Sender: FDA-Public Use
  Company Number: PHEH2016US007096

PATIENT
  Sex: Female

DRUGS (2)
  1. TEKTURNA [Suspect]
     Active Substance: ALISKIREN HEMIFUMARATE
     Dosage: 600 MG, TOOK TWO 300MG TABLETS
     Route: 065
  2. TEKTURNA [Suspect]
     Active Substance: ALISKIREN HEMIFUMARATE
     Indication: PRODUCT USED FOR UNKNOWN INDICATION
     Dosage: 300 MG, QD
     Route: 065

REACTIONS (1)
  - Accidental overdose [Unknown]
